FAERS Safety Report 9466131 (Version 1)
Quarter: 2013Q3

REPORT INFORMATION
  Report Type: Spontaneous
  Country: US (occurrence: None)
  Receive Date: 20130816
  Receipt Date: 20130816
  Transmission Date: 20140515
  Serious: Yes (Hospitalization)
  Sender: FDA-Public Use
  Company Number: None

PATIENT
  Age: 51 Year
  Sex: Female
  Weight: 72.8 kg

DRUGS (3)
  1. TRASTUZUMAB [Suspect]
     Indication: NEOADJUVANT THERAPY
  2. TRASTUZUMAB [Suspect]
     Indication: BREAST CANCER
  3. ABRAXANE [Suspect]

REACTIONS (3)
  - Infected seroma [None]
  - Implant site extravasation [None]
  - Staphylococcus test positive [None]
